FAERS Safety Report 4585814-X (Version None)
Quarter: 2005Q1

REPORT INFORMATION
  Report Type: 
  Country: None (occurrence: None)
  Receive Date: 20050214
  Receipt Date: 20030507
  Transmission Date: 20050727
  Serious: Yes (Other)
  Sender: FDA-Public Use
  Company Number: GXKR2003JP00585

PATIENT
  Age: 78 Year
  Sex: Female

DRUGS (2)
  1. DICLOFENAC (NGX) (DICLOFENAC) [Suspect]
     Indication: BACK PAIN
     Dosage: 50 MG, ORAL
     Route: 048
  2. LOXOPROFEN (LOXOPROFEN) [Concomitant]

REACTIONS (1)
  - LABORATORY TEST INTERFERENCE [None]
